FAERS Safety Report 17308646 (Version 2)
Quarter: 2020Q1

REPORT INFORMATION
  Report Type: Report from Study
  Country: CO (occurrence: CO)
  Receive Date: 20200123
  Receipt Date: 20200131
  Transmission Date: 20200409
  Serious: Yes (Other)
  Sender: FDA-Public Use
  Company Number: CO-REGENERON PHARMACEUTICALS, INC.-2019-62082

PATIENT

DRUGS (3)
  1. EYLEA [Suspect]
     Active Substance: AFLIBERCEPT
     Indication: RETINAL VEIN OCCLUSION
     Dosage: 2 MG, FIRST INJECTION IN BOTH EYES
     Route: 031
     Dates: start: 20190628
  2. EYLEA [Suspect]
     Active Substance: AFLIBERCEPT
     Dosage: 2 MG, THIRD INJECTION IN BOTH EYES. TOTAL OF 3 INJECTIONS RECEIVED.
     Route: 031
     Dates: start: 20190830, end: 20190830
  3. EYLEA [Suspect]
     Active Substance: AFLIBERCEPT
     Dosage: 2 MG, SECOND INJECTION IN BOTH EYES
     Route: 031
     Dates: start: 20190726, end: 20190726

REACTIONS (6)
  - Inappropriate schedule of product administration [Not Recovered/Not Resolved]
  - Procedural complication [Not Recovered/Not Resolved]
  - Therapeutic response unexpected [Unknown]
  - Blindness [Not Recovered/Not Resolved]
  - Drug ineffective [Not Recovered/Not Resolved]
  - Eye operation [Unknown]

NARRATIVE: CASE EVENT DATE: 2019
